FAERS Safety Report 7676839-6 (Version None)
Quarter: 2011Q3

REPORT INFORMATION
  Report Type: 
  Country: None (occurrence: None)
  Receive Date: 20110805
  Receipt Date: 20110722
  Transmission Date: 20111222
  Serious: Yes (Hospitalization, Other)
  Sender: FDA-Public Use
  Company Number: DSJ-2010-19965

PATIENT
  Age: 61 Year
  Sex: Male

DRUGS (5)
  1. ACETYLSALICYLIC ACID SRT [Concomitant]
  2. BENICAR HCT [Suspect]
     Indication: HYPERTENSION
     Dosage: 40/25 MG (1 IN 1 D),PER ORAL ; 20/12.5 MG (1 IN 1 D),PER ORAL
     Route: 048
     Dates: start: 20080701, end: 20110601
  3. BENICAR HCT [Suspect]
     Indication: HYPERTENSION
     Dosage: 40/25 MG (1 IN 1 D),PER ORAL ; 20/12.5 MG (1 IN 1 D),PER ORAL
     Route: 048
     Dates: start: 20071108, end: 20080701
  4. METFORMIN HCL [Concomitant]
  5. GLICLAZIDE (GLICLAZIDE) (GLICLAZIDE) [Concomitant]

REACTIONS (3)
  - POLLAKIURIA [None]
  - RENAL FAILURE [None]
  - BLOOD GLUCOSE INCREASED [None]
